FAERS Safety Report 8886523 (Version 1)
Quarter: 2012Q4

REPORT INFORMATION
  Report Type: 
  Country: US (occurrence: US)
  Receive Date: 20121105
  Receipt Date: 20121105
  Transmission Date: 20130627
  Serious: Yes (Death, Other)
  Sender: FDA-Public Use
  Company Number: PHEH2012US021633

PATIENT
  Sex: Female

DRUGS (1)
  1. RECLAST [Suspect]
     Route: 042

REACTIONS (3)
  - Death [Fatal]
  - Respiratory failure [Unknown]
  - Cardiac failure congestive [Unknown]
